FAERS Safety Report 20538955 (Version 1)
Quarter: 2022Q1

REPORT INFORMATION
  Report Type: Spontaneous
  Country: FR (occurrence: FR)
  Receive Date: 20220302
  Receipt Date: 20220302
  Transmission Date: 20220424
  Serious: Yes (Hospitalization)
  Sender: FDA-Public Use
  Company Number: None

PATIENT
  Age: 76 Year
  Sex: Male
  Weight: 71 kg

DRUGS (14)
  1. DARZALEX [Suspect]
     Active Substance: DARATUMUMAB
     Indication: Plasma cell myeloma
     Route: 065
     Dates: start: 20210708, end: 20210812
  2. REVLIMID [Suspect]
     Active Substance: LENALIDOMIDE
     Indication: Plasma cell myeloma
     Route: 048
     Dates: start: 20210708, end: 20210817
  3. DEXAMETHASONE ACETATE [Concomitant]
     Active Substance: DEXAMETHASONE ACETATE
     Dates: start: 20210708
  4. DESONIDE [Concomitant]
     Active Substance: DESONIDE
  5. SKENAN [Concomitant]
     Active Substance: MORPHINE SULFATE
  6. ZOMETA [Concomitant]
     Active Substance: ZOLEDRONIC ACID
  7. NEBIVOLOL [Concomitant]
     Active Substance: NEBIVOLOL
  8. CICLOPIROX\CICLOPIROX OLAMINE [Concomitant]
     Active Substance: CICLOPIROX\CICLOPIROX OLAMINE
  9. ERYTHROPOIETIN [Concomitant]
     Active Substance: ERYTHROPOIETIN
  10. MORPHINE SULFATE [Concomitant]
     Active Substance: MORPHINE SULFATE
  11. AMLODIPINE [Concomitant]
     Active Substance: AMLODIPINE BESYLATE
  12. DOLIPRANE [Concomitant]
     Active Substance: ACETAMINOPHEN
  13. ELIQUIS [Concomitant]
     Active Substance: APIXABAN
  14. VALACYCLOVIR HYDROCHLORIDE [Concomitant]
     Active Substance: VALACYCLOVIR HYDROCHLORIDE

REACTIONS (2)
  - Coronary artery disease [Recovering/Resolving]
  - Rash [Recovering/Resolving]

NARRATIVE: CASE EVENT DATE: 20210812
